APPROVED DRUG PRODUCT: CLEOCIN T
Active Ingredient: CLINDAMYCIN PHOSPHATE
Strength: EQ 1% BASE **Federal Register determination that product was not discontinued or withdrawn for safety or effectiveness reasons**
Dosage Form/Route: SOLUTION;TOPICAL
Application: N050537 | Product #001
Applicant: PFIZER INC
Approved: Approved Prior to Jan 1, 1982 | RLD: Yes | RS: No | Type: DISCN